FAERS Safety Report 9469753 (Version 1)
Quarter: 2013Q3

REPORT INFORMATION
  Report Type: Report from Study
  Country: AR (occurrence: AR)
  Receive Date: 20130822
  Receipt Date: 20130822
  Transmission Date: 20140515
  Serious: Yes (Death)
  Sender: FDA-Public Use
  Company Number: PHHY2013AR090574

PATIENT
  Sex: Female

DRUGS (2)
  1. RASILEZ [Suspect]
     Dosage: 150 MG, UNK
     Route: 048
     Dates: start: 20110429, end: 201107
  2. EXFORGE [Suspect]
     Dosage: UNK (80/5 MG), UNK
     Route: 048
     Dates: start: 201108

REACTIONS (1)
  - Pneumonia [Fatal]
